FAERS Safety Report 12598225 (Version 1)
Quarter: 2016Q3

REPORT INFORMATION
  Report Type: Report from Study
  Country: US (occurrence: US)
  Receive Date: 20160726
  Receipt Date: 20160726
  Transmission Date: 20161109
  Serious: Yes (Death, Hospitalization)
  Sender: FDA-Public Use
  Company Number: US-BIOGEN-2014BI064598

PATIENT
  Age: 57 Year
  Sex: Female

DRUGS (2)
  1. TYSABRI [Suspect]
     Active Substance: NATALIZUMAB
     Indication: MULTIPLE SCLEROSIS
     Route: 042
     Dates: start: 20130813, end: 20140528
  2. TYSABRI [Suspect]
     Active Substance: NATALIZUMAB
     Route: 042
     Dates: start: 20150107, end: 20150107

REACTIONS (8)
  - Multiple sclerosis [Not Recovered/Not Resolved]
  - Back pain [Not Recovered/Not Resolved]
  - Abasia [Not Recovered/Not Resolved]
  - Asthenia [Not Recovered/Not Resolved]
  - Head injury [Not Recovered/Not Resolved]
  - Fatigue [Unknown]
  - Lung carcinoma cell type unspecified stage IV [Fatal]
  - Emotional poverty [Not Recovered/Not Resolved]

NARRATIVE: CASE EVENT DATE: 2014
